FAERS Safety Report 6609372-0 (Version None)
Quarter: 2010Q1

REPORT INFORMATION
  Report Type: 
  Country: None (occurrence: None)
  Receive Date: 20100224
  Receipt Date: 20100209
  Transmission Date: 20100710
  Serious: Yes (Hospitalization)
  Sender: FDA-Public Use
  Company Number: CIP10000293

PATIENT
  Age: 76 Year
  Sex: Female

DRUGS (15)
  1. ACTONEL [Suspect]
     Indication: OSTEOPOROSIS
     Dosage: 2.5 MG DAILY, ORAL
     Route: 048
     Dates: start: 20070705, end: 20091211
  2. PRECIPITATED CALCIUM CARBONATE (CALCIUM CARBONATE) [Suspect]
     Indication: OSTEOPOROSIS
     Dosage: 1 DOSE FROM UNKNOWN, ORAL
     Route: 048
     Dates: start: 20070705, end: 20091211
  3. ZOLPIDEM TARTRATE [Concomitant]
  4. MERISLON [Concomitant]
  5. TRAVELMIN [Concomitant]
  6. DEPAS (ETIZOLAM) [Concomitant]
  7. LENDORM [Concomitant]
  8. ARTZ/ARTZ DISPO (HYALURONATE SODIUM) [Concomitant]
  9. MEPIVACAINE HCL [Concomitant]
  10. VOLTAREN [Concomitant]
  11. VITANEURIN [Concomitant]
  12. RHYTHMY [Concomitant]
  13. JUVELA N (TOCOPHERYL NICOTINATE) [Concomitant]
  14. MOBIC [Concomitant]
  15. SUVENYL (HYALURONATE SODIUM) [Concomitant]

REACTIONS (14)
  - AORTIC ARTERIOSCLEROSIS [None]
  - ATRIAL FIBRILLATION [None]
  - COLITIS ISCHAEMIC [None]
  - COLITIS ULCERATIVE [None]
  - COLONIC POLYP [None]
  - GASTRIC DISORDER [None]
  - HEPATIC CYST [None]
  - MALAISE [None]
  - NAUSEA [None]
  - PANCREATIC CYST [None]
  - RECTAL HAEMORRHAGE [None]
  - RENAL CYST [None]
  - URINARY TRACT INFECTION [None]
  - WHITE BLOOD CELLS STOOL [None]
